FAERS Safety Report 9196938 (Version 2)
Quarter: 2013Q2

REPORT INFORMATION
  Report Type: Spontaneous
  Country: US (occurrence: None)
  Receive Date: 20120709
  Receipt Date: 20121107
  Transmission Date: 20140414
  Serious: Yes (Other)
  Sender: FDA-Public Use
  Company Number: 2012HGS-003654

PATIENT
  Age: 56 Year
  Sex: Male
  Weight: 97.52 kg

DRUGS (10)
  1. BENLYSTA [Suspect]
     Indication: SYSTEMIC LUPUS ERYTHEMATOSUS
     Route: 041
     Dates: start: 20120411
  2. PREDNISONE (PREDNISONE) (PREDNISONE) [Concomitant]
  3. CELLCEPT (MYCOPHENOLATE MOFETIL) (MYCOPHENOLATE MOFETIL) [Concomitant]
  4. CARDURA (DOXAZOSIN MESILATE) (DOXAZOSIN MESILATE) [Concomitant]
  5. LISINOPRIL (LISINOPRIL DIHYDRATE) (LISINOPRIL DIHYDRATE) [Concomitant]
  6. PERCOCET (TYLOX /00446701/) (PARACETAMOL, OXYCODONE HYDROCHLORIDE, OXYCODONE TEREPHTHALATE) [Concomitant]
  7. ASPIRIN (ACETYLSALICYLIC ACID) (ACETYLSALICYLIC ACID) [Concomitant]
  8. VITAMIN D (ERGOCALCIFEROL) (ERGOCALCIFEROL) [Concomitant]
  9. RESTASIS (CICLOSPORIN) (CICLOSPORIN) [Concomitant]
  10. CYMBALTA (DULOXETINE HYDROCHLORIDE) (DULOXETINE HYDROCHLORIDE) [Concomitant]

REACTIONS (1)
  - Anxiety [None]
